APPROVED DRUG PRODUCT: CEFOXITIN AND DEXTROSE IN DUPLEX CONTAINER
Active Ingredient: CEFOXITIN SODIUM
Strength: EQ 1GM BASE/VIAL
Dosage Form/Route: INJECTABLE;INJECTION
Application: N065214 | Product #001 | TE Code: AP
Applicant: B BRAUN MEDICAL INC
Approved: Mar 10, 2006 | RLD: Yes | RS: Yes | Type: RX